FAERS Safety Report 6786198-9 (Version None)
Quarter: 2010Q2

REPORT INFORMATION
  Report Type: 
  Country: None (occurrence: None)
  Receive Date: 20100623
  Receipt Date: 20100609
  Transmission Date: 20101027
  Serious: Yes (Hospitalization, Other)
  Sender: FDA-Public Use
  Company Number: US-ELI_LILLY_AND_COMPANY-US201006003065

PATIENT
  Sex: Female

DRUGS (9)
  1. FORTEO [Suspect]
     Indication: OSTEOPOROSIS
     Dosage: 20 UG, DAILY (1/D)
  2. PREDNISONE [Concomitant]
     Dosage: 20 MG, EACH MORNING
  3. PREDNISONE [Concomitant]
     Dosage: 10 MG, EACH EVENING
  4. VITAMIN D [Concomitant]
  5. CALCITRIOL [Concomitant]
  6. VITAMIN B-12 [Concomitant]
  7. SYMBICORT [Concomitant]
  8. SPIRIVA [Concomitant]
  9. ALBUTEROL [Concomitant]
     Dosage: UNK, AS NEEDED

REACTIONS (5)
  - BLOOD GLUCOSE INCREASED [None]
  - CHRONIC OBSTRUCTIVE PULMONARY DISEASE [None]
  - DYSPNOEA [None]
  - OEDEMA PERIPHERAL [None]
  - POLYP COLORECTAL [None]
